FAERS Safety Report 4877008-5 (Version None)
Quarter: 2005Q4

REPORT INFORMATION
  Report Type: 
  Country: None (occurrence: None)
  Receive Date: 20051206
  Receipt Date: 20050911
  Transmission Date: 20060501
  Serious: No
  Sender: FDA-Public Use
  Company Number: USA0509108254

PATIENT
  Sex: Male

DRUGS (1)
  1. CYMBALTA [Suspect]
     Dosage: 120 MG
     Dates: start: 20050801

REACTIONS (4)
  - DERMATITIS ALLERGIC [None]
  - PRURITUS [None]
  - THROAT TIGHTNESS [None]
  - URTICARIA [None]
